FAERS Safety Report 12410905 (Version 2)
Quarter: 2016Q3

REPORT INFORMATION
  Report Type: Spontaneous
  Country: BE (occurrence: BE)
  Receive Date: 20160527
  Receipt Date: 20160719
  Transmission Date: 20161109
  Serious: Yes (Life-Threatening, Hospitalization)
  Sender: FDA-Public Use
  Company Number: BE-ASTRAZENECA-2016SE56517

PATIENT
  Age: 39 Year
  Sex: Female
  Weight: 80 kg

DRUGS (8)
  1. SEROQUEL XR [Suspect]
     Active Substance: QUETIAPINE FUMARATE
     Indication: PSYCHOTIC DISORDER
     Route: 048
     Dates: start: 2011, end: 201403
  2. NOZINAN [Concomitant]
     Active Substance: LEVOMEPROMAZINE
     Indication: PSYCHOTIC DISORDER
     Route: 048
     Dates: start: 2011
  3. IMPROMEN [Concomitant]
     Active Substance: BROMPERIDOL
     Indication: PSYCHOTIC DISORDER
     Dosage: 2 MG/ML - 10 DROPS P.D.
     Route: 048
     Dates: start: 2011
  4. TEMESTA [Concomitant]
     Active Substance: LORAZEPAM
     Indication: PSYCHOTIC DISORDER
     Dates: start: 2011
  5. LYSANXIA [Concomitant]
     Active Substance: PRAZEPAM
     Indication: ANXIETY
     Route: 048
     Dates: start: 2011
  6. MERCILON [Concomitant]
     Active Substance: DESOGESTREL\ETHINYL ESTRADIOL
     Indication: ORAL CONTRACEPTION
     Dosage: DAILY
     Route: 048
  7. SEROQUEL XR [Suspect]
     Active Substance: QUETIAPINE FUMARATE
     Indication: PSYCHOTIC DISORDER
     Route: 048
     Dates: start: 2011, end: 201403
  8. LYSANXIA [Concomitant]
     Active Substance: PRAZEPAM
     Indication: PSYCHOTIC DISORDER
     Route: 048
     Dates: start: 2011

REACTIONS (2)
  - Cardiogenic shock [Recovered/Resolved with Sequelae]
  - Cardiomyopathy [Recovered/Resolved with Sequelae]

NARRATIVE: CASE EVENT DATE: 20140307
